FAERS Safety Report 19820228 (Version 1)
Quarter: 2021Q3

REPORT INFORMATION
  Report Type: Spontaneous
  Country: US (occurrence: US)
  Receive Date: 20210912
  Receipt Date: 20210912
  Transmission Date: 20211014
  Serious: No
  Sender: FDA-Public Use
  Company Number: None

PATIENT
  Age: 15 Year
  Sex: Female
  Weight: 61.2 kg

DRUGS (5)
  1. REGEN?COV [Suspect]
     Active Substance: CASIRIVIMAB\IMDEVIMAB
     Indication: COVID-19
     Dosage: ?          QUANTITY:3 INJECTION(S);?
     Dates: start: 20210903, end: 20210903
  2. VITAMIN C [Concomitant]
     Active Substance: ASCORBIC ACID
  3. DEXAMTHASONE [Concomitant]
     Active Substance: DEXAMETHASONE
  4. VITAMIN D [Concomitant]
     Active Substance: VITAMIN D NOS
  5. CENTRUM [Concomitant]
     Active Substance: VITAMINS

REACTIONS (11)
  - Bradycardia [None]
  - Livedo reticularis [None]
  - Limb discomfort [None]
  - Pallor [None]
  - Hypotension [None]
  - Loss of consciousness [None]
  - Tachycardia [None]
  - Pain [None]
  - Hyperhidrosis [None]
  - Peripheral swelling [None]
  - Hypopnoea [None]

NARRATIVE: CASE EVENT DATE: 20210903
